FAERS Safety Report 9500714 (Version 1)
Quarter: 2013Q3

REPORT INFORMATION
  Report Type: Spontaneous
  Country: US (occurrence: US)
  Receive Date: 20130905
  Receipt Date: 20130905
  Transmission Date: 20140515
  Serious: No
  Sender: FDA-Public Use
  Company Number: US-009507513-1309USA000749

PATIENT
  Sex: 0

DRUGS (1)
  1. AZASITE [Suspect]
     Indication: POST PROCEDURAL INFECTION
     Dosage: 2 DROPS IN EACH EYE TWICE DAILY FOR 2 DAYS FOLLOWED BY 1 DROP IN EACH EYE FOR NEXT FIVE DAYS
     Route: 047
     Dates: start: 20130826

REACTIONS (3)
  - Product packaging quantity issue [Unknown]
  - Off label use [Unknown]
  - No adverse event [Unknown]
